FAERS Safety Report 15992146 (Version 1)
Quarter: 2019Q1

REPORT INFORMATION
  Report Type: Spontaneous
  Country: US (occurrence: US)
  Receive Date: 20190221
  Receipt Date: 20190221
  Transmission Date: 20190418
  Serious: Yes (Hospitalization, Other)
  Sender: FDA-Public Use
  Company Number: US-BAYER-2019-036714

PATIENT
  Age: 72 Year
  Sex: Male

DRUGS (1)
  1. DR. SCHOLLS CORN REMOVERS [Suspect]
     Active Substance: SALICYLIC ACID
     Indication: WOUND

REACTIONS (9)
  - Skin ulcer [None]
  - Osteomyelitis [None]
  - Leg amputation [None]
  - Emotional distress [None]
  - Anhedonia [None]
  - Pain in extremity [None]
  - Back pain [None]
  - Gait disturbance [None]
  - Product use in unapproved indication [None]

NARRATIVE: CASE EVENT DATE: 201504
